FAERS Safety Report 8535270-1 (Version None)
Quarter: 2012Q3

REPORT INFORMATION
  Report Type: 
  Country: None (occurrence: None)
  Receive Date: 20120725
  Receipt Date: 20120717
  Transmission Date: 20120928
  Serious: Yes (Hospitalization)
  Sender: FDA-Public Use
  Company Number: US-TEVA-341399USA

PATIENT
  Sex: Male
  Weight: 61 kg

DRUGS (11)
  1. ACETYLSALICYLIC ACID SRT [Concomitant]
  2. LENALIDOMIDE [Suspect]
     Dates: start: 20120417, end: 20120507
  3. FLUCONAZOLE [Concomitant]
  4. TREANDA [Suspect]
     Indication: MULTIPLE MYELOMA
     Dosage: DAYS 1-2
     Route: 042
     Dates: start: 20120417, end: 20120418
  5. DEXAMETHASONE [Suspect]
     Dates: start: 20120417, end: 20120508
  6. SERETIDE                           /01420901/ [Concomitant]
  7. BREVA [Concomitant]
  8. LOSARTAN POTASSIUM [Concomitant]
  9. NEPHRO-VITE                        /01719801/ [Concomitant]
  10. PROCHLORPERAZINE EDISYLATE [Concomitant]
  11. ZOLPIDEM TARTRATE [Concomitant]

REACTIONS (1)
  - RENAL FAILURE ACUTE [None]
